FAERS Safety Report 18670819 (Version 1)
Quarter: 2020Q4

REPORT INFORMATION
  Report Type: Spontaneous
  Country: JO (occurrence: JO)
  Receive Date: 20201228
  Receipt Date: 20201228
  Transmission Date: 20210114
  Serious: Yes (Death)
  Sender: FDA-Public Use
  Company Number: JO-ASTRAZENECA-2020SF73127

PATIENT
  Age: 81 Year
  Sex: Female

DRUGS (1)
  1. TAGRISSO [Suspect]
     Active Substance: OSIMERTINIB
     Indication: EGFR GENE MUTATION
     Dosage: 80.0MG UNKNOWN
     Route: 048
     Dates: start: 20200206

REACTIONS (1)
  - Malignant neoplasm progression [Fatal]
